FAERS Safety Report 6703283-8 (Version None)
Quarter: 2010Q2

REPORT INFORMATION
  Report Type: 
  Country: None (occurrence: None)
  Receive Date: 20100430
  Receipt Date: 20100416
  Transmission Date: 20101027
  Serious: Yes (Hospitalization)
  Sender: FDA-Public Use
  Company Number: FR-RANBAXY-2010RR-31172

PATIENT
  Age: 33 Year
  Sex: Female
  Weight: 75 kg

DRUGS (1)
  1. PARACETAMOL [Suspect]
     Dosage: 30 G, UNK
     Route: 048

REACTIONS (4)
  - ACUTE PULMONARY OEDEMA [None]
  - HEPATIC FAILURE [None]
  - OVERDOSE [None]
  - RENAL FAILURE [None]
